FAERS Safety Report 12884711 (Version 1)
Quarter: 2016Q4

REPORT INFORMATION
  Report Type: Spontaneous
  Country: US (occurrence: US)
  Receive Date: 20161026
  Receipt Date: 20161026
  Transmission Date: 20170207
  Serious: Yes (Death)
  Sender: FDA-Public Use
  Company Number: US-CELGENEUS-USA-2016104415

PATIENT
  Age: 56 Year
  Sex: Female
  Weight: 68.55 kg

DRUGS (3)
  1. ARANESP [Concomitant]
     Active Substance: DARBEPOETIN ALFA
     Indication: PLASMA CELL MYELOMA
     Route: 058
     Dates: start: 20160817, end: 20161009
  2. NINLARO [Concomitant]
     Active Substance: IXAZOMIB
     Indication: PLASMA CELL MYELOMA
     Route: 065
     Dates: start: 20160817, end: 20161009
  3. REVLIMID [Suspect]
     Active Substance: LENALIDOMIDE
     Indication: PLASMA CELL MYELOMA
     Dosage: 25 MILLIGRAM
     Route: 048
     Dates: start: 20160707, end: 20161009

REACTIONS (1)
  - Death [Fatal]

NARRATIVE: CASE EVENT DATE: 20161009
